FAERS Safety Report 6506223-X (Version None)
Quarter: 2009Q4

REPORT INFORMATION
  Report Type: 
  Country: None (occurrence: None)
  Receive Date: 20091218
  Receipt Date: 20091211
  Transmission Date: 20100525
  Serious: Yes (Hospitalization)
  Sender: FDA-Public Use
  Company Number: GB-PFIZER INC-2008051271

PATIENT
  Age: 42 Year
  Sex: Female
  Weight: 66.7 kg

DRUGS (6)
  1. CHAMPIX [Suspect]
     Route: 048
     Dates: start: 20080301, end: 20080523
  2. BRICANYL [Concomitant]
     Indication: ASTHMA
     Route: 055
  3. PULMICORT [Concomitant]
     Indication: ASTHMA
     Route: 055
  4. FOLIC ACID [Concomitant]
     Dosage: 5 MG, 1X/DAY
     Route: 048
     Dates: start: 20060525
  5. LEVOTHYROXINE SODIUM [Concomitant]
     Indication: HYPOTHYROIDISM
     Dosage: 350 UG, 1X/DAY
     Route: 048
     Dates: start: 20050607
  6. SULFASALAZINE [Concomitant]
     Indication: OSTEOARTHRITIS
     Dosage: 50 MG, 2X/DAY
     Route: 048
     Dates: start: 20071227

REACTIONS (1)
  - OSTEOARTHRITIS [None]
